FAERS Safety Report 9429231 (Version 1)
Quarter: 2013Q3

REPORT INFORMATION
  Report Type: Spontaneous
  Country: FR (occurrence: FR)
  Receive Date: 20130730
  Receipt Date: 20130730
  Transmission Date: 20140515
  Serious: Yes (Hospitalization)
  Sender: FDA-Public Use
  Company Number: FR-WATSON-2013-13141

PATIENT
  Age: 66 Year
  Sex: Male

DRUGS (11)
  1. FLUCONAZOLE (UNKNOWN) [Suspect]
     Indication: PRODUCT USED FOR UNKNOWN INDICATION
     Dosage: 1 DF, DAILY
     Route: 048
     Dates: start: 201208, end: 20121006
  2. VANCOMYCIN HYDROCHLORIDE (UNKNOWN) [Suspect]
     Indication: PRODUCT USED FOR UNKNOWN INDICATION
     Dosage: UNK
     Route: 042
     Dates: start: 20120825, end: 20120925
  3. RIFADINE /00146901/ [Suspect]
     Indication: ENDOCARDITIS
     Dosage: 200 MG, BID
     Route: 048
     Dates: start: 201208, end: 201209
  4. RIFADINE /00146901/ [Suspect]
     Dosage: UNK
     Route: 048
     Dates: start: 20120910, end: 20121006
  5. DOLIPRANE [Suspect]
     Indication: PAIN
     Dosage: UNK
     Route: 048
     Dates: start: 20120911, end: 20121001
  6. ACUPAN [Suspect]
     Indication: PRODUCT USED FOR UNKNOWN INDICATION
     Dosage: UNK
     Route: 048
     Dates: start: 20120910, end: 20120926
  7. HEPARIN (UNKNOWN) [Suspect]
     Indication: PRODUCT USED FOR UNKNOWN INDICATION
     Dosage: UNK
     Route: 042
     Dates: start: 20120904, end: 20120913
  8. INEXIUM                            /01479302/ [Concomitant]
     Indication: PRODUCT USED FOR UNKNOWN INDICATION
     Dosage: 40 MG, UNK
     Route: 065
     Dates: start: 20120825
  9. TAHOR [Concomitant]
     Indication: PRODUCT USED FOR UNKNOWN INDICATION
     Dosage: 20 MG, UNK
     Route: 065
     Dates: start: 20120825
  10. SINTROM [Concomitant]
     Indication: PRODUCT USED FOR UNKNOWN INDICATION
     Dosage: UNK
     Route: 065
     Dates: start: 20120905
  11. DIFFU K [Concomitant]
     Indication: PRODUCT USED FOR UNKNOWN INDICATION
     Dosage: 2 DF, TID
     Route: 065
     Dates: start: 20120907

REACTIONS (1)
  - Renal failure acute [Recovering/Resolving]
